FAERS Safety Report 8135600-9 (Version None)
Quarter: 2012Q1

REPORT INFORMATION
  Report Type: 
  Country: None (occurrence: None)
  Receive Date: 20120113
  Receipt Date: 20111111
  Transmission Date: 20120608
  Serious: No
  Sender: FDA-Public Use
  Company Number: AE-2011-003380

PATIENT
  Age: 51 Year
  Sex: Female
  Weight: 79.3795 kg

DRUGS (12)
  1. DESYREL [Concomitant]
  2. ZYRTEC [Concomitant]
  3. SYNTHROID [Concomitant]
  4. INCIVEK [Suspect]
     Dosage: 2250 MG (750 MG, 1 IN 8 HR), ORAL
     Route: 048
     Dates: start: 20111021
  5. LEXAPRO [Concomitant]
  6. NORVASC [Concomitant]
  7. ALLOPURINOL [Concomitant]
  8. VITAMIN D [Concomitant]
  9. RIBAVIRIN [Concomitant]
  10. HYDROCHLOROTHIAZIDE [Concomitant]
  11. PEGINTERFERON (PEGINTERFERON ALFA-2A) [Concomitant]
  12. ENALAPRIL MALEATE [Concomitant]

REACTIONS (3)
  - DRUG DOSE OMISSION [None]
  - FATIGUE [None]
  - PRURITUS [None]
